FAERS Safety Report 16162779 (Version 1)
Quarter: 2019Q2

REPORT INFORMATION
  Report Type: Spontaneous
  Country: US (occurrence: US)
  Receive Date: 20190405
  Receipt Date: 20190405
  Transmission Date: 20190711
  Serious: No
  Sender: FDA-Public Use
  Company Number: US-MYLANLABS-2019M1025313

PATIENT
  Sex: Female
  Weight: 48.08 kg

DRUGS (5)
  1. ALPRAZOLAM. [Concomitant]
     Active Substance: ALPRAZOLAM
     Dosage: ONE TABLET OR HALF A HALF TABLET AT BEDTIME, HS
  2. ESOMEPRAZOLE MAGNESIUM D/R [Suspect]
     Active Substance: ESOMEPRAZOLE MAGNESIUM
     Indication: GASTROOESOPHAGEAL REFLUX DISEASE
     Dosage: 40 MILLIGRAM
     Route: 048
     Dates: start: 2016
  3. ALPRAZOLAM. [Concomitant]
     Active Substance: ALPRAZOLAM
     Indication: ANXIETY
     Dosage: 1 DOSAGE FORM, AM
  4. ALPRAZOLAM. [Concomitant]
     Active Substance: ALPRAZOLAM
     Dosage: HALF A TABLET AT LUNCH
  5. TYLENOL [Concomitant]
     Active Substance: ACETAMINOPHEN
     Dosage: UNK

REACTIONS (16)
  - Nausea [Unknown]
  - Abdominal pain upper [Unknown]
  - Condition aggravated [Not Recovered/Not Resolved]
  - Eructation [Not Recovered/Not Resolved]
  - Decreased appetite [Unknown]
  - Epigastric discomfort [Not Recovered/Not Resolved]
  - Milk allergy [Unknown]
  - Joint injury [Unknown]
  - Arthritis [Unknown]
  - Ligament sprain [Unknown]
  - Constipation [Unknown]
  - Back pain [Unknown]
  - Myalgia [Not Recovered/Not Resolved]
  - Oedema peripheral [Unknown]
  - Muscle tightness [Unknown]
  - Arthralgia [Not Recovered/Not Resolved]
